FAERS Safety Report 11624968 (Version 1)
Quarter: 2015Q4

REPORT INFORMATION
  Report Type: Spontaneous
  Country: BR (occurrence: BR)
  Receive Date: 20151013
  Receipt Date: 20151013
  Transmission Date: 20160304
  Serious: Yes (Other)
  Sender: FDA-Public Use
  Company Number: BR-PFIZER INC-2015322203

PATIENT
  Age: 57 Year
  Sex: Female

DRUGS (2)
  1. REFRESH OPTIVE [Suspect]
     Active Substance: CARBOXYMETHYLCELLULOSE SODIUM\GLYCERIN
     Indication: EYE LUBRICATION THERAPY
     Dosage: UNK
  2. XALATAN [Suspect]
     Active Substance: LATANOPROST
     Indication: GLAUCOMA
     Dosage: UNK

REACTIONS (10)
  - Immune system disorder [Unknown]
  - Feeling abnormal [Unknown]
  - Eye disorder [Unknown]
  - Hypersensitivity [Unknown]
  - Myalgia [Unknown]
  - Blindness [Unknown]
  - Disease progression [Unknown]
  - Ocular hyperaemia [Recovered/Resolved]
  - Conjunctivitis [Unknown]
  - Arthralgia [Unknown]

NARRATIVE: CASE EVENT DATE: 2015
